FAERS Safety Report 5410055-3 (Version None)
Quarter: 2007Q3

REPORT INFORMATION
  Report Type: 
  Country: None (occurrence: None)
  Receive Date: 20070713
  Receipt Date: 20070613
  Transmission Date: 20080115
  Serious: Yes (Other)
  Sender: FDA-Public Use
  Company Number: 2007SP002235

PATIENT
  Age: 80 Year
  Sex: Male
  Weight: 63.5036 kg

DRUGS (2)
  1. LUNESTA [Suspect]
     Indication: INSOMNIA
     Dosage: 2 MG; HS; ORAL; 2 MG; HS; GASTROSTOMY TUBE
     Route: 048
     Dates: start: 20060101
  2. LUNESTA [Suspect]
     Indication: INSOMNIA
     Dosage: 2 MG; HS; ORAL; 2 MG; HS; GASTROSTOMY TUBE
     Route: 048
     Dates: start: 20070101

REACTIONS (3)
  - DYSPHAGIA [None]
  - MIDDLE INSOMNIA [None]
  - WEIGHT DECREASED [None]
